FAERS Safety Report 21600084 (Version 2)
Quarter: 2022Q4

REPORT INFORMATION
  Report Type: Spontaneous
  Country: IL (occurrence: IL)
  Receive Date: 20221116
  Receipt Date: 20221118
  Transmission Date: 20230113
  Serious: Yes (Death, Hospitalization, Other)
  Sender: FDA-Public Use
  Company Number: IL-BRISTOL-MYERS SQUIBB COMPANY-2022-137707

PATIENT
  Age: 72 Year
  Sex: Male

DRUGS (2)
  1. NIVOLUMAB [Suspect]
     Active Substance: NIVOLUMAB
     Indication: Non-small cell lung cancer
     Dosage: DOSE : 360 MG;     FREQ : Q3W - 3 DOSES
     Route: 042
  2. CAPMATINIB [Concomitant]
     Active Substance: CAPMATINIB
     Indication: Product used for unknown indication
     Route: 065

REACTIONS (3)
  - Non-small cell lung cancer [Unknown]
  - Cerebrovascular accident [Fatal]
  - Off label use [Unknown]
